FAERS Safety Report 11412545 (Version 1)
Quarter: 2015Q3

REPORT INFORMATION
  Report Type: Spontaneous
  Country: US (occurrence: US)
  Receive Date: 20150824
  Receipt Date: 20150824
  Transmission Date: 20151125
  Serious: No
  Sender: FDA-Public Use
  Company Number: US-JNJFOC-20150810063

PATIENT
  Age: 46 Year
  Sex: Male
  Weight: 73.03 kg

DRUGS (6)
  1. ALL OTHER THERAPEUTIC PRODUCT [Concomitant]
     Active Substance: UNSPECIFIED INGREDIENT
     Indication: DYSPEPSIA
     Route: 065
  2. MENS ROGAINE EXTRA STRENGTH [Suspect]
     Active Substance: MINOXIDIL
     Indication: ALOPECIA
     Route: 061
     Dates: start: 2005, end: 20150723
  3. OMEPRAZOLE. [Concomitant]
     Active Substance: OMEPRAZOLE
     Indication: GASTROOESOPHAGEAL REFLUX DISEASE
     Route: 065
  4. CENTRUM SILVER [Concomitant]
     Active Substance: VITAMINS
     Indication: ROUTINE HEALTH MAINTENANCE
     Route: 065
  5. XANAX [Concomitant]
     Active Substance: ALPRAZOLAM
     Indication: SKIN LESION
     Route: 065
  6. MENS ROGAINE EXTRA STRENGTH [Suspect]
     Active Substance: MINOXIDIL
     Indication: ALOPECIA
     Route: 061
     Dates: start: 1998

REACTIONS (11)
  - Drug administered at inappropriate site [Recovered/Resolved]
  - Alopecia [Recovered/Resolved]
  - Acne [Recovered/Resolved]
  - Inappropriate schedule of drug administration [Recovered/Resolved]
  - Pruritus [Recovered/Resolved]
  - Product use issue [Recovered/Resolved]
  - Product quality issue [Unknown]
  - Paraesthesia [Recovered/Resolved]
  - Dry skin [Recovered/Resolved]
  - Wrong technique in product usage process [Recovered/Resolved]
  - Drug ineffective for unapproved indication [Unknown]
